FAERS Safety Report 9985761 (Version 2)
Quarter: 2015Q1

REPORT INFORMATION
  Report Type: Report from Study
  Country: US (occurrence: US)
  Receive Date: 20140307
  Receipt Date: 20150216
  Transmission Date: 20150721
  Serious: No
  Sender: FDA-Public Use
  Company Number: US-ABBVIE-13P-163-1087569-00

PATIENT
  Age: 45 Year
  Sex: Female
  Weight: 60.84 kg

DRUGS (3)
  1. HUMIRA [Suspect]
     Active Substance: ADALIMUMAB
     Indication: CROHN^S DISEASE
     Dates: start: 201204, end: 20130315
  2. HUMIRA [Suspect]
     Active Substance: ADALIMUMAB
     Indication: CROHN^S DISEASE
  3. HYDROCODONE [Concomitant]
     Active Substance: HYDROCODONE
     Indication: PAIN

REACTIONS (7)
  - Pneumonia [Recovering/Resolving]
  - Peripheral swelling [Recovered/Resolved]
  - Bronchitis [Recovering/Resolving]
  - Rheumatoid arthritis [Recovered/Resolved]
  - Fibromyalgia [Recovering/Resolving]
  - Cough [Recovering/Resolving]
  - Polyarthritis [Recovered/Resolved]

NARRATIVE: CASE EVENT DATE: 2012
